FAERS Safety Report 6032478-4 (Version None)
Quarter: 2009Q1

REPORT INFORMATION
  Report Type: 
  Country: None (occurrence: None)
  Receive Date: 20090109
  Receipt Date: 20090102
  Transmission Date: 20090719
  Serious: Yes (Other)
  Sender: FDA-Public Use
  Company Number: US-ASTRAZENECA-2009UW00235

PATIENT
  Sex: Female

DRUGS (1)
  1. PRILOSEC OTC [Suspect]
     Indication: HIATUS HERNIA
     Dosage: 1 TABLET DAILY
     Route: 048

REACTIONS (2)
  - DYSPNOEA [None]
  - PAIN IN EXTREMITY [None]
